FAERS Safety Report 12355189 (Version 1)
Quarter: 2016Q2

REPORT INFORMATION
  Report Type: Spontaneous
  Country: US (occurrence: US)
  Receive Date: 20160511
  Receipt Date: 20160511
  Transmission Date: 20160815
  Serious: Yes (Other)
  Sender: FDA-Public Use
  Company Number: US-HORIZON-DUE-0078-2016

PATIENT
  Age: 22 Year
  Sex: Female

DRUGS (1)
  1. DUEXIS [Suspect]
     Active Substance: FAMOTIDINE\IBUPROFEN
     Indication: DYSMENORRHOEA
     Route: 048
     Dates: start: 201603

REACTIONS (3)
  - Off label use [Unknown]
  - Intentional product misuse [Unknown]
  - Gastric ulcer [Unknown]

NARRATIVE: CASE EVENT DATE: 20160413
